FAERS Safety Report 4341787-6 (Version None)
Quarter: 2004Q2

REPORT INFORMATION
  Report Type: 
  Country: None (occurrence: None)
  Receive Date: 20040415
  Receipt Date: 20040331
  Transmission Date: 20050107
  Serious: Yes (Other)
  Sender: FDA-Public Use
  Company Number: S04-UKI-01520-01

PATIENT
  Age: 22 Year
  Sex: Male

DRUGS (2)
  1. CIPRALEX (ESCITALOPRAM) [Suspect]
     Indication: DEPRESSION
     Dosage: 10 MG QD PO
     Route: 048
     Dates: start: 20040312, end: 20040323
  2. ALBUTEROL SULFATE [Concomitant]

REACTIONS (1)
  - GRAND MAL CONVULSION [None]
